FAERS Safety Report 6726826-7 (Version None)
Quarter: 2010Q2

REPORT INFORMATION
  Report Type: 
  Country: None (occurrence: None)
  Receive Date: 20100516
  Receipt Date: 20100505
  Transmission Date: 20101027
  Serious: Yes (Other)
  Sender: FDA-Public Use
  Company Number: US-JNJFOC-20100504660

PATIENT
  Sex: Female

DRUGS (10)
  1. CHILDREN'S MOTRIN [Suspect]
     Route: 048
  2. CHILDREN'S MOTRIN [Suspect]
     Indication: DRUG USE FOR UNKNOWN INDICATION
     Route: 048
  3. CHILDREN'S TYLENOL LIQUID BUBBLEGUM [Suspect]
  4. CHILDREN'S TYLENOL LIQUID BUBBLEGUM [Suspect]
     Indication: DRUG USE FOR UNKNOWN INDICATION
  5. MOTRIN [Suspect]
  6. MOTRIN [Suspect]
     Indication: DRUG USE FOR UNKNOWN INDICATION
  7. CHILDREN'S MOTRIN [Suspect]
  8. CHILDREN'S MOTRIN [Suspect]
     Indication: DRUG USE FOR UNKNOWN INDICATION
  9. TYLENOL (CAPLET) [Suspect]
  10. TYLENOL (CAPLET) [Suspect]
     Indication: DRUG USE FOR UNKNOWN INDICATION

REACTIONS (2)
  - DYSPNOEA [None]
  - PRODUCT QUALITY ISSUE [None]
